FAERS Safety Report 10970674 (Version 2)
Quarter: 2015Q2

REPORT INFORMATION
  Report Type: Spontaneous
  Country: JP (occurrence: JP)
  Receive Date: 20150331
  Receipt Date: 20150423
  Transmission Date: 20150821
  Serious: Yes (Hospitalization)
  Sender: FDA-Public Use
  Company Number: JP-009507513-1503JPN014170

PATIENT
  Age: 51 Year
  Sex: Male

DRUGS (5)
  1. LOXONIN [Suspect]
     Active Substance: LOXOPROFEN SODIUM
     Dosage: UNKNOWN
     Route: 048
  2. PEGINTRON [Suspect]
     Active Substance: PEGINTERFERON ALFA-2B
     Indication: CHRONIC HEPATITIS C
     Dosage: 100 MICROGRAM, QW
     Route: 058
  3. TALION (BEPOTASTINE BESYLATE) [Suspect]
     Active Substance: BEPOTASTINE
     Dosage: UNKNOWN
     Route: 048
  4. REBETOL [Suspect]
     Active Substance: RIBAVIRIN
     Dosage: UNKNOWN
     Route: 048
  5. MUCOSTA [Suspect]
     Active Substance: REBAMIPIDE
     Dosage: UKNOWN
     Route: 048

REACTIONS (1)
  - Pneumonia [Unknown]

NARRATIVE: CASE EVENT DATE: 201503
